FAERS Safety Report 6231967-7 (Version None)
Quarter: 2009Q2

REPORT INFORMATION
  Report Type: 
  Country: None (occurrence: None)
  Receive Date: 20090616
  Receipt Date: 20080812
  Transmission Date: 20091009
  Serious: No
  Sender: FDA-Public Use
  Company Number: US-ABBOTT-08P-163-0463023-00

PATIENT
  Sex: Male
  Weight: 79.904 kg

DRUGS (8)
  1. GENGRAF CAPSULES [Suspect]
     Indication: LIVER TRANSPLANT
     Route: 048
     Dates: start: 20070521
  2. POTASSIUM CHLORIDE [Concomitant]
     Indication: MINERAL SUPPLEMENTATION
     Route: 048
     Dates: start: 20070901
  3. LISINOPRIL [Concomitant]
     Indication: HYPERTENSION
     Route: 048
     Dates: start: 20080101
  4. BACTRIM [Concomitant]
     Indication: PROPHYLAXIS
     Dosage: 480MILLIGRAMS WEEKLY/ MONDAY, WEDNESDAY, AND FRIDAY 1 TABLET=160 MILLIGRAM
     Route: 048
     Dates: start: 20070501
  5. ACETYLSALICYLIC ACID [Concomitant]
     Indication: PROPHYLAXIS
     Route: 048
     Dates: start: 20070501
  6. MAGNESIUM OXIDE [Concomitant]
     Indication: MINERAL SUPPLEMENTATION
     Route: 048
     Dates: start: 20070501
  7. MULTI-VITAMIN [Concomitant]
     Indication: VITAMIN SUPPLEMENTATION
     Route: 048
     Dates: start: 20070501
  8. HUMULIN 70/30 [Concomitant]
     Indication: DIABETES MELLITUS
     Dosage: SLIDING SCALE
     Route: 058
     Dates: start: 19870101

REACTIONS (3)
  - FOREIGN BODY TRAUMA [None]
  - HOT FLUSH [None]
  - THROAT IRRITATION [None]
